FAERS Safety Report 19455265 (Version 15)
Quarter: 2022Q2

REPORT INFORMATION
  Report Type: Spontaneous
  Country: US (occurrence: US)
  Receive Date: 20210623
  Receipt Date: 20220421
  Transmission Date: 20220720
  Serious: Yes (Other)
  Sender: FDA-Public Use
  Company Number: US-LUNDBECK-DKLU3033905

PATIENT
  Age: 40 Year
  Sex: Male

DRUGS (11)
  1. VYEPTI [Suspect]
     Active Substance: EPTINEZUMAB-JJMR
     Indication: Migraine
     Route: 041
     Dates: start: 20210621
  2. VYEPTI [Suspect]
     Active Substance: EPTINEZUMAB-JJMR
     Route: 041
     Dates: start: 20210913
  3. VYEPTI [Suspect]
     Active Substance: EPTINEZUMAB-JJMR
     Route: 041
     Dates: start: 20211209
  4. VYEPTI [Suspect]
     Active Substance: EPTINEZUMAB-JJMR
     Route: 041
     Dates: start: 2015
  5. KETAMINE [Concomitant]
     Active Substance: KETAMINE
     Indication: Depression
     Route: 065
  6. PSILOCYBIN MUSHROOMS [Concomitant]
     Indication: Depression
     Route: 065
  7. ASPIRIN [Concomitant]
     Active Substance: ASPIRIN
     Indication: Headache
     Route: 065
  8. TYLENOL [Concomitant]
     Active Substance: ACETAMINOPHEN
     Indication: Headache
     Route: 065
  9. EXCEDRIN [Concomitant]
     Active Substance: ACETAMINOPHEN\ASPIRIN\CAFFEINE
     Indication: Headache
     Route: 065
  10. UBRELVY [Concomitant]
     Active Substance: UBROGEPANT
     Indication: Product used for unknown indication
     Route: 065
  11. CANNABIS SATIVA SUBSP. INDICA TOP [Concomitant]
     Active Substance: CANNABIS SATIVA SUBSP. INDICA TOP
     Indication: Depression
     Route: 065

REACTIONS (10)
  - Gallbladder disorder [Recovering/Resolving]
  - Feeling abnormal [Recovered/Resolved]
  - Migraine [Recovered/Resolved with Sequelae]
  - Headache [Recovered/Resolved]
  - Feeling abnormal [Unknown]
  - Depression [Unknown]
  - Dyspepsia [Not Recovered/Not Resolved]
  - Nasal discomfort [Unknown]
  - Throat irritation [Unknown]
  - Drug ineffective [Unknown]
